FAERS Safety Report 6704676-5 (Version None)
Quarter: 2010Q2

REPORT INFORMATION
  Report Type: 
  Country: None (occurrence: None)
  Receive Date: 20100430
  Receipt Date: 20100422
  Transmission Date: 20101027
  Serious: Yes (Other)
  Sender: FDA-Public Use
  Company Number: GB-ROCHE-693348

PATIENT
  Sex: Male
  Weight: 89 kg

DRUGS (4)
  1. CAPECITABINE [Suspect]
     Indication: GASTRIC CANCER
     Dosage: LAST DOSE PRIOR TO EVENT: 09 SEPTEMBER 2009.
     Route: 048
     Dates: start: 20090708
  2. BEVACIZUMAB [Suspect]
     Indication: GASTRIC CANCER
     Dosage: LAST DOSE PRIOR TO EVENT: 19 SEPTEMBER 2009.
     Route: 042
     Dates: start: 20090708
  3. CISPLATIN [Suspect]
     Indication: GASTRIC CANCER
     Dosage: LAST DOSE PRIOR TO EVENT: 19 AUGUST 2009.
     Route: 042
     Dates: start: 20090708
  4. EPIRUBICIN [Suspect]
     Indication: GASTRIC CANCER
     Dosage: LAST DOSE PRIOR TO EVENT: 19 AUGUST 2009.
     Route: 042
     Dates: start: 20090708

REACTIONS (2)
  - ANASTOMOTIC LEAK [None]
  - PULMONARY EMBOLISM [None]
